FAERS Safety Report 7508718-9 (Version None)
Quarter: 2011Q2

REPORT INFORMATION
  Report Type: 
  Country: None (occurrence: None)
  Receive Date: 20110527
  Receipt Date: 20100902
  Transmission Date: 20111010
  Serious: No
  Sender: FDA-Public Use
  Company Number: A0879666A

PATIENT
  Sex: Male

DRUGS (7)
  1. LORATADINE [Suspect]
     Route: 065
  2. NASONEX [Suspect]
     Route: 065
  3. HYDROCHLOROTHIAZIDE [Suspect]
     Route: 065
  4. VENTOLIN [Suspect]
     Route: 065
  5. LISINOPRIL [Suspect]
     Route: 065
  6. ASMANEX TWISTHALER [Suspect]
     Route: 065
  7. ATENOLOL [Suspect]
     Route: 065

REACTIONS (1)
  - DIZZINESS [None]
